FAERS Safety Report 7512003-9 (Version None)
Quarter: 2011Q2

REPORT INFORMATION
  Report Type: 
  Country: None (occurrence: None)
  Receive Date: 20110531
  Receipt Date: 20110525
  Transmission Date: 20111010
  Serious: Yes (Hospitalization)
  Sender: FDA-Public Use
  Company Number: PHHY2011US46054

PATIENT
  Sex: Male

DRUGS (11)
  1. TOBI [Suspect]
     Indication: CYSTIC FIBROSIS
     Dosage: 300 MG, BID QO 28 DAYS
  2. ADVAIR DISKUS 100/50 [Concomitant]
  3. CREON [Concomitant]
  4. PREDNISONE [Concomitant]
     Dosage: 10 MG, UNK
  5. NEXIUM [Concomitant]
  6. PULMOZYME [Concomitant]
  7. TESTOSTERONE [Concomitant]
  8. CYSTON [Concomitant]
  9. HYPERSAL [Concomitant]
  10. FLORINOX [Concomitant]
  11. VENTOLIN [Concomitant]

REACTIONS (2)
  - PYREXIA [None]
  - MENINGITIS VIRAL [None]
